FAERS Safety Report 9639374 (Version 4)
Quarter: 2014Q2

REPORT INFORMATION
  Report Type: Report from Study
  Country: CA (occurrence: CA)
  Receive Date: 20131022
  Receipt Date: 20140521
  Transmission Date: 20141212
  Serious: Yes (Hospitalization, Other)
  Sender: FDA-Public Use
  Company Number: CA-ROCHE-1192228

PATIENT
  Age: 26 Year
  Sex: Female
  Weight: 90.9 kg

DRUGS (12)
  1. RITUXAN [Suspect]
     Indication: RHEUMATOID ARTHRITIS
     Dosage: DAY 1, 15
     Route: 042
     Dates: start: 20131030
  2. ACTEMRA [Suspect]
     Indication: RHEUMATOID ARTHRITIS
     Route: 042
     Dates: start: 20101103, end: 20121217
  3. PREDNISONE [Suspect]
     Indication: PRODUCT USED FOR UNKNOWN INDICATION
     Route: 065
     Dates: start: 2012
  4. QUETIAPINE [Concomitant]
     Route: 065
     Dates: start: 201205
  5. METHOTREXATE [Concomitant]
     Route: 065
     Dates: start: 201205
  6. FOLIC ACID [Concomitant]
     Route: 065
     Dates: start: 201205
  7. RABEPRAZOLE [Concomitant]
     Route: 065
     Dates: start: 201205
  8. HYDROMORPH CONTIN [Concomitant]
     Dosage: 9 MG AND 12 MG
     Route: 065
     Dates: start: 201205
  9. DILAUDID [Concomitant]
     Route: 065
     Dates: start: 201205
  10. ADVIL [Concomitant]
     Route: 065
     Dates: start: 201205
  11. ACETAMINOPHEN [Concomitant]
     Indication: PREMEDICATION
     Route: 048
     Dates: start: 20131030
  12. METHYLPREDNISOLONE [Concomitant]
     Indication: PREMEDICATION
     Route: 042
     Dates: start: 20131030

REACTIONS (8)
  - Failure to thrive [Unknown]
  - Drug ineffective [Unknown]
  - Depression [Unknown]
  - Weight decreased [Recovered/Resolved]
  - Weight increased [Not Recovered/Not Resolved]
  - Rheumatoid arthritis [Not Recovered/Not Resolved]
  - Pain [Not Recovered/Not Resolved]
  - Infusion related reaction [Unknown]
